FAERS Safety Report 7098534-7 (Version None)
Quarter: 2010Q4

REPORT INFORMATION
  Report Type: 
  Country: None (occurrence: None)
  Receive Date: 20101112
  Receipt Date: 20101108
  Transmission Date: 20110411
  Serious: Yes (Hospitalization)
  Sender: FDA-Public Use
  Company Number: DE-SANOFI-AVENTIS-2010SA068225

PATIENT
  Age: 51 Year
  Sex: Female

DRUGS (3)
  1. OXALIPLATIN [Suspect]
     Route: 041
     Dates: start: 20100201, end: 20100201
  2. CETUXIMAB [Suspect]
     Route: 041
     Dates: start: 20100201, end: 20100201
  3. FLUOROURACIL [Suspect]
     Route: 041
     Dates: start: 20100201, end: 20100201

REACTIONS (3)
  - CHEST DISCOMFORT [None]
  - CHEST PAIN [None]
  - FAILURE TO ANASTOMOSE [None]
